FAERS Safety Report 8771148 (Version 2)
Quarter: 2012Q4

REPORT INFORMATION
  Report Type: 
  Country: US (occurrence: US)
  Receive Date: 20120906
  Receipt Date: 20121016
  Transmission Date: 20130627
  Serious: Yes (Death, Hospitalization)
  Sender: FDA-Public Use
  Company Number: US-ROCHE-1107001

PATIENT
  Sex: Female
  Weight: 58.11 kg

DRUGS (17)
  1. ACTEMRA [Suspect]
     Indication: RHEUMATOID ARTHRITIS
     Dosage: 400mg/20ml
     Route: 042
     Dates: start: 20110309
  2. LEFLUNOMIDE [Suspect]
     Indication: RHEUMATOID ARTHRITIS
     Dosage: ARAVA
     Route: 048
     Dates: start: 20110220
  3. LEFLUNOMIDE [Suspect]
     Route: 048
     Dates: start: 20120215
  4. ADVAIR [Concomitant]
  5. ALBUTEROL [Concomitant]
  6. AMBIEN [Concomitant]
  7. CHERATUSSIN (UNK INGREDIENTS) [Concomitant]
  8. CITALOPRAM [Concomitant]
  9. COMBIVENT INHALER [Concomitant]
  10. GABAPENTIN [Concomitant]
  11. KLOR-CON [Concomitant]
  12. PERCOCET [Concomitant]
  13. PREDNISONE [Concomitant]
  14. PRILOSEC [Concomitant]
  15. TYLENOL [Concomitant]
  16. ZANTAC [Concomitant]
  17. ZEBETA [Concomitant]

REACTIONS (10)
  - Death [Fatal]
  - Escherichia sepsis [Unknown]
  - Escherichia urinary tract infection [Unknown]
  - Cardiac valve abscess [Unknown]
  - Rheumatoid arthritis [Unknown]
  - Chronic obstructive pulmonary disease [Unknown]
  - Renal failure acute [Unknown]
  - Thrombocytopenia [Unknown]
  - Hypokalaemia [Unknown]
  - Acute respiratory failure [Unknown]
